FAERS Safety Report 11884593 (Version 1)
Quarter: 2016Q1

REPORT INFORMATION
  Report Type: Other
  Country: US (occurrence: US)
  Receive Date: 20160104
  Receipt Date: 20160104
  Transmission Date: 20160526
  Serious: Yes (Hospitalization)
  Sender: FDA-Public Use
  Company Number: US-LUPIN PHARMACEUTICALS INC.-2015-03778

PATIENT
  Age: 48 Year
  Sex: Male

DRUGS (4)
  1. CLARITHROMYCIN. [Suspect]
     Active Substance: CLARITHROMYCIN
     Indication: PNEUMONIA
     Route: 048
  2. CLONIDINE. [Concomitant]
     Active Substance: CLONIDINE
     Indication: PRODUCT USED FOR UNKNOWN INDICATION
     Route: 048
  3. COLCHICINE. [Interacting]
     Active Substance: COLCHICINE
     Indication: PRODUCT USED FOR UNKNOWN INDICATION
     Route: 048
  4. COLCHICINE. [Interacting]
     Active Substance: COLCHICINE
     Route: 065

REACTIONS (2)
  - Rhabdomyolysis [Recovered/Resolved]
  - Drug interaction [Unknown]
